FAERS Safety Report 17228868 (Version 2)
Quarter: 2020Q1

REPORT INFORMATION
  Report Type: Spontaneous
  Country: JP (occurrence: JP)
  Receive Date: 20200103
  Receipt Date: 20200109
  Transmission Date: 20200409
  Serious: Yes (Other)
  Sender: FDA-Public Use
  Company Number: JP-PFIZER INC-2019558419

PATIENT
  Age: 72 Year
  Sex: Female

DRUGS (1)
  1. METHOTREXATE. [Suspect]
     Active Substance: METHOTREXATE
     Indication: RHEUMATOID ARTHRITIS
     Dosage: UNK (LOW-DOSE) (221 MONTHS AND THE ACCUMULATED DOSE WAS APPROXIMATELY 5000 MG)

REACTIONS (1)
  - Acute myeloid leukaemia [Recovered/Resolved with Sequelae]
